FAERS Safety Report 8025134-4 (Version None)
Quarter: 2012Q1

REPORT INFORMATION
  Report Type: 
  Country: None (occurrence: None)
  Receive Date: 20120105
  Receipt Date: 20120104
  Transmission Date: 20120608
  Serious: Yes (Other)
  Sender: FDA-Public Use
  Company Number: US-NAPPMUNDI-USA-2011-0079759

PATIENT
  Sex: Female

DRUGS (3)
  1. OXYCONTIN [Suspect]
     Dosage: 40 MG, TID
  2. OXYCONTIN [Suspect]
     Indication: PRODUCT USED FOR UNKNOWN INDICATION
     Dosage: 20 MG, TID
     Dates: start: 20011005
  3. OXYCONTIN [Suspect]
     Dosage: 80 MG, TID
     Dates: end: 20030901

REACTIONS (3)
  - DRUG DEPENDENCE [None]
  - CARDIAC FAILURE CONGESTIVE [None]
  - PNEUMONIA [None]
